FAERS Safety Report 20768786 (Version 1)
Quarter: 2022Q2

REPORT INFORMATION
  Report Type: Spontaneous
  Country: US (occurrence: None)
  Receive Date: 20220428
  Receipt Date: 20220428
  Transmission Date: 20220721
  Serious: Yes (Hospitalization)
  Sender: FDA-Public Use
  Company Number: None

PATIENT
  Age: 53 Year
  Sex: Male

DRUGS (1)
  1. CAPECITABINE [Suspect]
     Active Substance: CAPECITABINE
     Dosage: OTHER QUANTITY : 3 TABLETS AM,4 ;?FREQUENCY : DAILY;?
     Route: 048
     Dates: start: 202202

REACTIONS (3)
  - Angioedema [None]
  - Off label use [None]
  - Therapy interrupted [None]

NARRATIVE: CASE EVENT DATE: 20220421
